FAERS Safety Report 9953787 (Version 1)
Quarter: 2014Q1

REPORT INFORMATION
  Report Type: Spontaneous
  Country: BR (occurrence: BR)
  Receive Date: 20140304
  Receipt Date: 20140304
  Transmission Date: 20141002
  Serious: Yes (Hospitalization)
  Sender: FDA-Public Use
  Company Number: BR-ABBVIE-14P-020-1206424-00

PATIENT
  Age: 41 Year
  Sex: Female
  Weight: 56 kg

DRUGS (2)
  1. HUMIRA [Suspect]
     Indication: ANKYLOSING SPONDYLITIS
     Route: 058
  2. UNSPECIFIED MEDICATION [Suspect]
     Indication: CARDIOVASCULAR DISORDER

REACTIONS (4)
  - Generalised oedema [Recovered/Resolved]
  - Nasal oedema [Recovered/Resolved]
  - Local swelling [Recovered/Resolved]
  - Eye swelling [Recovered/Resolved]
